FAERS Safety Report 21105380 (Version 3)
Quarter: 2022Q3

REPORT INFORMATION
  Report Type: Spontaneous
  Country: US (occurrence: US)
  Receive Date: 20220720
  Receipt Date: 20220908
  Transmission Date: 20221027
  Serious: Yes (Other)
  Sender: FDA-Public Use
  Company Number: US-PFIZER INC-202200967134

PATIENT
  Age: 56 Year
  Sex: Female
  Weight: 68.04 kg

DRUGS (12)
  1. PAXLOVID [Suspect]
     Active Substance: NIRMATRELVIR\RITONAVIR
     Indication: COVID-19 treatment
     Dosage: UNK
  2. ADDERALL [Concomitant]
     Active Substance: AMPHETAMINE ASPARTATE\AMPHETAMINE SULFATE\DEXTROAMPHETAMINE SACCHARATE\DEXTROAMPHETAMINE SULFATE
     Dosage: 30 MG, 2X/DAY
  3. TOPIRAMATE [Concomitant]
     Active Substance: TOPIRAMATE
     Indication: Migraine
     Dosage: 250 MG (I TAKE 250 OF ALL TOGETHER)
  4. TOPIRAMATE [Concomitant]
     Active Substance: TOPIRAMATE
     Dosage: 350 MG (I TAKE 150 MILLIGRAMS AND THEN TWO 100)
  5. METOPROLOL SUCCINATE [Concomitant]
     Active Substance: METOPROLOL SUCCINATE
     Indication: Tachycardia
     Dosage: 2 DF, DAILY
  6. ACETAMINOPHEN\HYDROCODONE [Concomitant]
     Active Substance: ACETAMINOPHEN\HYDROCODONE
     Dosage: UNK (10 WEEK 2 FIVE)
  7. ALPRAZOLAM [Concomitant]
     Active Substance: ALPRAZOLAM
     Dosage: 0.5 MG
  8. XYZAL [Concomitant]
     Active Substance: LEVOCETIRIZINE DIHYDROCHLORIDE
     Indication: Hypersensitivity
     Dosage: UNK
  9. PROGESTERONE [Concomitant]
     Active Substance: PROGESTERONE
     Dosage: 100 MG, 1X/DAY (1 AT NIGHT)
  10. OSPHENA [Concomitant]
     Active Substance: OSPEMIFENE
     Dosage: 60 MG, 1X/DAY (1 AT NIGHT)
  11. BIESTROGEN [Concomitant]
     Dosage: UNK, 1X/DAY (HAVE EVERY NIGHT, THAT^S LIKE A CREAM)
  12. IMVEXXY [Concomitant]
     Active Substance: ESTRADIOL
     Dosage: UNK, 2X/WEEK (THESE ARE LIKE INSERT YOU HAVE TO PUT IT)

REACTIONS (9)
  - Neuropathy peripheral [Unknown]
  - Muscular weakness [Unknown]
  - Pain in extremity [Unknown]
  - Back pain [Unknown]
  - Tendon pain [Unknown]
  - Ligament sprain [Unknown]
  - Dysstasia [Unknown]
  - Radiculopathy [Unknown]
  - Hypersomnia [Unknown]
